FAERS Safety Report 4702813-5 (Version None)
Quarter: 2005Q2

REPORT INFORMATION
  Report Type: 
  Country: None (occurrence: None)
  Receive Date: 20050629
  Receipt Date: 20050627
  Transmission Date: 20051028
  Serious: Yes (Other)
  Sender: FDA-Public Use
  Company Number: BD-SANOFI-SYNTHELABO-F01200501113

PATIENT
  Sex: Male

DRUGS (4)
  1. OXALIPLATIN [Suspect]
     Indication: COLORECTAL CANCER
     Route: 042
  2. FLUOROURACIL [Suspect]
     Indication: COLORECTAL CANCER
  3. BEVACIZUMAB [Suspect]
     Indication: COLORECTAL CANCER
     Dosage: 245 MG 1 X PER 2 WEEK
     Route: 042
     Dates: start: 20050428
  4. LEUCOVORIN [Suspect]
     Indication: COLORECTAL CANCER

REACTIONS (3)
  - HAEMOGLOBIN DECREASED [None]
  - HYPOVOLAEMIC SHOCK [None]
  - RED BLOOD CELL COUNT DECREASED [None]
